FAERS Safety Report 8781669 (Version 2)
Quarter: 2013Q1

REPORT INFORMATION
  Report Type: Spontaneous
  Country: RU (occurrence: RU)
  Receive Date: 20120913
  Receipt Date: 20130115
  Transmission Date: 20140127
  Serious: Yes (Hospitalization, Other)
  Sender: FDA-Public Use
  Company Number: RU-PAR PHARMACEUTICAL, INC-2012SCPR004616

PATIENT
  Sex: 0

DRUGS (9)
  1. CIPROFLOXACIN ER [Suspect]
     Indication: PNEUMONIA
     Dosage: UNK, UNKNOWN
     Route: 065
  2. METRONIDAZOLE [Suspect]
     Indication: PNEUMONIA
     Dosage: UNK, UNKNOWN
     Route: 065
  3. CIFRAN [Suspect]
     Indication: PNEUMONIA
     Dosage: UNK, UNKNOWN
     Route: 065
  4. CEFOTAXIME [Suspect]
     Indication: PNEUMONIA
     Dosage: UNK, UNKNOWN
     Route: 065
  5. SUMAMED [Suspect]
     Indication: PNEUMONIA
     Dosage: UNK, UNKNOWN
     Route: 065
  6. AMOXICLAV                          /01000301/ [Suspect]
     Indication: INTERSTITIAL LUNG DISEASE
     Dosage: 1.2 G, TID
     Route: 040
  7. ENALAPRIL [Concomitant]
     Indication: HYPERTENSION
     Dosage: 5 MG, BID
     Route: 065
  8. DICLOFENAC [Concomitant]
     Indication: PRODUCT USED FOR UNKNOWN INDICATION
     Dosage: 25 MG, TID
     Route: 065
  9. DIFLUCAN [Concomitant]
     Indication: PRODUCT USED FOR UNKNOWN INDICATION
     Dosage: 400 MG, BID
     Route: 065

REACTIONS (4)
  - Alveolitis allergic [Recovering/Resolving]
  - Pulmonary fibrosis [Recovering/Resolving]
  - Pleurisy [Recovering/Resolving]
  - Candida test positive [Unknown]
